FAERS Safety Report 10151262 (Version 1)
Quarter: 2014Q2

REPORT INFORMATION
  Report Type: Spontaneous
  Country: US (occurrence: US)
  Receive Date: 20140502
  Receipt Date: 20140502
  Transmission Date: 20141212
  Serious: No
  Sender: FDA-Public Use
  Company Number: US-ASTRAZENECA-2014SE09608

PATIENT
  Sex: Female

DRUGS (1)
  1. PRILOSEC OTC [Suspect]
     Route: 048
     Dates: start: 20140201, end: 20140201

REACTIONS (4)
  - Gastrooesophageal reflux disease [Unknown]
  - Gastric pH decreased [Unknown]
  - Condition aggravated [Unknown]
  - Wrong technique in drug usage process [Unknown]
